FAERS Safety Report 18957330 (Version 1)
Quarter: 2021Q1

REPORT INFORMATION
  Report Type: Spontaneous
  Country: US (occurrence: US)
  Receive Date: 20210301
  Receipt Date: 20210301
  Transmission Date: 20210420
  Serious: Yes (Hospitalization)
  Sender: FDA-Public Use
  Company Number: None

PATIENT
  Age: 69 Year
  Sex: Male
  Weight: 99 kg

DRUGS (2)
  1. IXAZOMIB 4MG [Suspect]
     Active Substance: IXAZOMIB
     Indication: AMYLOIDOSIS
     Dosage: ?          OTHER DOSE:LXAZOMIB;OTHER FREQUENCY:DAYS 1,8,15;?
     Route: 048
     Dates: start: 20200914, end: 20200928
  2. CYCLOPHOSPHAMIDE 500MG/M2 [Suspect]
     Active Substance: CYCLOPHOSPHAMIDE
     Dosage: ?          OTHER DOSE:CYCLOPHOSPHAMIDE;?
     Route: 048
     Dates: start: 20200914, end: 20201005

REACTIONS (2)
  - Dyspnoea [None]
  - Ventricular tachycardia [None]

NARRATIVE: CASE EVENT DATE: 20201008
